FAERS Safety Report 11750724 (Version 2)
Quarter: 2015Q4

REPORT INFORMATION
  Report Type: Spontaneous
  Country: US (occurrence: US)
  Receive Date: 20151118
  Receipt Date: 20151124
  Transmission Date: 20160304
  Serious: No
  Sender: FDA-Public Use
  Company Number: US-PFIZER INC-2015380080

PATIENT
  Age: 62 Year
  Sex: Male

DRUGS (2)
  1. ADVIL [Suspect]
     Active Substance: IBUPROFEN
     Indication: BACK PAIN
     Dosage: 200 MG TABLETS, TAKES 3-4 AT A TIME, 3-4 TIMES A DAY BY MOUTH
     Route: 048
     Dates: start: 201509
  2. ADVIL [Suspect]
     Active Substance: IBUPROFEN
     Indication: PAIN

REACTIONS (2)
  - Drug ineffective [Recovered/Resolved]
  - Intentional product use issue [Recovered/Resolved]
